FAERS Safety Report 7812902-4 (Version None)
Quarter: 2011Q4

REPORT INFORMATION
  Report Type: 
  Country: None (occurrence: None)
  Receive Date: 20111011
  Receipt Date: 20110930
  Transmission Date: 20120403
  Serious: Yes (Hospitalization)
  Sender: FDA-Public Use
  Company Number: 2011196096

PATIENT
  Age: 44 Year
  Sex: Female
  Weight: 76 kg

DRUGS (1)
  1. FRAGMIN [Suspect]
     Indication: DEEP VEIN THROMBOSIS
     Dosage: 18000 IU, SUBCUTANEOUS
     Route: 058
     Dates: start: 20110718

REACTIONS (4)
  - WRONG TECHNIQUE IN DRUG USAGE PROCESS [None]
  - INJURY ASSOCIATED WITH DEVICE [None]
  - PRODUCT QUALITY ISSUE [None]
  - NEEDLE ISSUE [None]
